FAERS Safety Report 18325541 (Version 1)
Quarter: 2020Q3

REPORT INFORMATION
  Report Type: Spontaneous
  Country: AU (occurrence: AU)
  Receive Date: 20200929
  Receipt Date: 20200929
  Transmission Date: 20201103
  Serious: Yes (Hospitalization, Other)
  Sender: FDA-Public Use
  Company Number: AU-MACLEODS PHARMACEUTICALS US LTD-MAC2020028194

PATIENT

DRUGS (4)
  1. EPINEPHRINE. [Suspect]
     Active Substance: EPINEPHRINE
     Indication: NERVE BLOCK
     Dosage: UNK, 1:200,000
     Route: 065
  2. FENTANYL. [Suspect]
     Active Substance: FENTANYL
     Indication: SEDATION
     Dosage: 50 MICROGRAM, SINGLE, 1 TOTAL
     Route: 042
  3. LIDOCAINE. [Suspect]
     Active Substance: LIDOCAINE
     Indication: NERVE BLOCK
     Dosage: 20 MILLILITER, SINGLE, 1 TOTAL, BOLUS, 2 %
     Route: 065
  4. MIDAZOLAM. [Suspect]
     Active Substance: MIDAZOLAM
     Indication: SEDATION
     Dosage: 1 MILLIGRAM, SINGLE, 1 TOTAL
     Route: 042

REACTIONS (8)
  - Atrial fibrillation [Recovering/Resolving]
  - Sedation complication [Recovering/Resolving]
  - Nerve block [Recovering/Resolving]
  - Respiratory acidosis [Recovering/Resolving]
  - Hypertension [Recovering/Resolving]
  - Ventricular extrasystoles [Recovering/Resolving]
  - Haemodynamic instability [Recovering/Resolving]
  - Respiratory failure [Recovering/Resolving]
